FAERS Safety Report 12985860 (Version 1)
Quarter: 2016Q4

REPORT INFORMATION
  Report Type: Spontaneous
  Country: US (occurrence: US)
  Receive Date: 20161130
  Receipt Date: 20161130
  Transmission Date: 20170207
  Serious: No
  Sender: FDA-Public Use
  Company Number: US-009507513-1611USA008140

PATIENT

DRUGS (2)
  1. VITAMIN D [Concomitant]
     Active Substance: CHOLECALCIFEROL
     Dosage: UNK, TOTAL DAILY DOSE 50000 UNITS UNSPECIFIED
     Route: 048
  2. ZEPATIER [Suspect]
     Active Substance: ELBASVIR\GRAZOPREVIR
     Indication: HEPATITIS C
     Dosage: 1 DF, QD, DOSAGE FORM 50-100 MG, TAKE 1 TABLET BY MOUTH DAILY
     Route: 048
     Dates: end: 20161123

REACTIONS (1)
  - Abdominal discomfort [Unknown]
